FAERS Safety Report 9630654 (Version 1)
Quarter: 2013Q4

REPORT INFORMATION
  Report Type: Spontaneous
  Country: US (occurrence: US)
  Receive Date: 20131018
  Receipt Date: 20131018
  Transmission Date: 20140711
  Serious: Yes (Hospitalization)
  Sender: FDA-Public Use
  Company Number: US-BRISTOL-MYERS SQUIBB COMPANY-19530724

PATIENT
  Age: 50 Year
  Sex: Male
  Weight: 73 kg

DRUGS (6)
  1. ABILIFY [Suspect]
     Indication: BIPOLAR DISORDER
     Dosage: EVERY MRNG
     Route: 048
     Dates: start: 201305, end: 201307
  2. ABILIFY MAINTENA INJECTION [Suspect]
     Indication: BIPOLAR I DISORDER
     Dosage: 16JUL-16JUL13 IM?14AUG-14AUG13 UNKNOWN
     Dates: start: 20130716, end: 20130814
  3. SEROQUEL [Concomitant]
  4. DEPAKOTE [Concomitant]
  5. TRAZODONE HCL [Concomitant]
  6. FLUOXETINE [Concomitant]

REACTIONS (7)
  - Paranoia [Recovered/Resolved]
  - Delusion [Recovered/Resolved]
  - Mood altered [Recovered/Resolved]
  - Psychotic disorder [Recovered/Resolved]
  - Aggression [Recovered/Resolved]
  - Confusional state [Recovered/Resolved]
  - Off label use [Unknown]
